FAERS Safety Report 11550035 (Version 2)
Quarter: 2015Q4

REPORT INFORMATION
  Report Type: Spontaneous
  Country: US (occurrence: US)
  Receive Date: 20150924
  Receipt Date: 20151012
  Transmission Date: 20160304
  Serious: No
  Sender: FDA-Public Use
  Company Number: ALCN2015US005915

PATIENT
  Sex: Female

DRUGS (3)
  1. SYSTANE GEL DROPS ANYTIME PROTECTION [Suspect]
     Active Substance: POLYETHYLENE GLYCOL 400
     Indication: PROPHYLAXIS
     Dosage: 2 GTT, QD
     Route: 047
     Dates: start: 20150915
  2. SYSTANE GEL DROPS ANYTIME PROTECTION [Suspect]
     Active Substance: POLYETHYLENE GLYCOL 400
     Dosage: 1 GTT, QHS
     Route: 047
     Dates: start: 20150915
  3. SYSTANE ULTRA [Suspect]
     Active Substance: POLYETHYLENE GLYCOL 400\PROPYLENE GLYCOL
     Indication: PRODUCT USED FOR UNKNOWN INDICATION
     Dosage: 1 GTT, UNK
     Route: 047

REACTIONS (2)
  - Medication residue present [Recovered/Resolved]
  - Eyelid margin crusting [Recovered/Resolved]

NARRATIVE: CASE EVENT DATE: 20150915
